FAERS Safety Report 7939694-2 (Version None)
Quarter: 2011Q4

REPORT INFORMATION
  Report Type: 
  Country: None (occurrence: None)
  Receive Date: 20111125
  Receipt Date: 20111116
  Transmission Date: 20120403
  Serious: Yes (Other)
  Sender: FDA-Public Use
  Company Number: PHHY2011US102627

PATIENT
  Sex: Female

DRUGS (2)
  1. VITAMIN K TAB [Suspect]
     Dosage: UNK
  2. METHYLERGONOVINE MALEATE [Suspect]
     Dosage: 0.1 %, UNK
     Route: 030

REACTIONS (10)
  - LIVEDO RETICULARIS [None]
  - RESPIRATORY DEPRESSION [None]
  - CYANOSIS [None]
  - WRONG DRUG ADMINISTERED [None]
  - HYPOPNOEA [None]
  - MALAISE [None]
  - CRYING [None]
  - HYPERTONIA [None]
  - DYSKINESIA [None]
  - APNOEA [None]
